FAERS Safety Report 7578900-3 (Version None)
Quarter: 2011Q2

REPORT INFORMATION
  Report Type: 
  Country: None (occurrence: None)
  Receive Date: 20110628
  Receipt Date: 20110621
  Transmission Date: 20111010
  Serious: Yes (Hospitalization)
  Sender: FDA-Public Use
  Company Number: CA-ABBOTT-11P-028-0724437-00

PATIENT
  Sex: Female

DRUGS (2)
  1. PURINETHOL [Concomitant]
     Indication: PRODUCT USED FOR UNKNOWN INDICATION
  2. HUMIRA [Suspect]
     Indication: COLITIS ULCERATIVE
     Dosage: UNKNOWN
     Route: 058
     Dates: start: 20100528, end: 20110613

REACTIONS (6)
  - NAUSEA [None]
  - DEHYDRATION [None]
  - CROHN'S DISEASE [None]
  - BACTERIAL INFECTION [None]
  - DIARRHOEA [None]
  - CLOSTRIDIAL INFECTION [None]
